FAERS Safety Report 9227676 (Version 1)
Quarter: 2013Q1

REPORT INFORMATION
  Report Type: Spontaneous
  Country: US (occurrence: None)
  Receive Date: 20121031
  Receipt Date: 20121031
  Transmission Date: 20140127
  Serious: No
  Sender: FDA-Public Use
  Company Number: PHEH2012US015640

PATIENT
  Age: 29 Year
  Sex: Female
  Weight: 93 kg

DRUGS (5)
  1. GILENYA [Suspect]
     Route: 048
  2. XANAX (ALPRAZOLAM) [Concomitant]
  3. PERCOCET [Concomitant]
  4. ALEVE (NAPROXEN SODIUM) [Concomitant]
  5. TOPAMAX (TOPIRAMATE) [Concomitant]

REACTIONS (1)
  - Agitation [None]
